FAERS Safety Report 7406225-5 (Version None)
Quarter: 2011Q2

REPORT INFORMATION
  Report Type: 
  Country: None (occurrence: None)
  Receive Date: 20110411
  Receipt Date: 20110401
  Transmission Date: 20111010
  Serious: Yes (Other)
  Sender: FDA-Public Use
  Company Number: US-ASTRAZENECA-2011SE04493

PATIENT
  Age: 94 Year
  Sex: Female

DRUGS (7)
  1. SEROQUEL [Suspect]
     Indication: DEPRESSION
     Route: 048
     Dates: start: 20100323, end: 20110126
  2. ARICEPT [Concomitant]
     Indication: DEMENTIA
     Route: 048
     Dates: start: 20091208
  3. SEROQUEL [Suspect]
     Indication: DEMENTIA
     Route: 048
     Dates: start: 20100323, end: 20110126
  4. SEROQUEL [Suspect]
     Route: 048
     Dates: start: 20100301
  5. SEROQUEL [Suspect]
     Route: 048
     Dates: start: 20100301
  6. ZOLOFT [Concomitant]
     Indication: DEPRESSION
  7. NAMENDA [Concomitant]
     Route: 048
     Dates: start: 20091208

REACTIONS (4)
  - HEPATIC CIRRHOSIS [None]
  - METASTASES TO PERITONEUM [None]
  - ASCITES [None]
  - NEOPLASM MALIGNANT [None]
